FAERS Safety Report 26024553 (Version 1)
Quarter: 2025Q4

REPORT INFORMATION
  Report Type: Spontaneous
  Country: EU (occurrence: EU)
  Receive Date: 20251111
  Receipt Date: 20251111
  Transmission Date: 20260118
  Serious: Yes (Other)
  Sender: AUROBINDO
  Company Number: EU-EMB-M202007851-1

PATIENT
  Sex: Male
  Weight: 2.93 kg

DRUGS (3)
  1. SERTRALINE [Suspect]
     Active Substance: SERTRALINE HYDROCHLORIDE
     Indication: Depression
     Dosage: 100 MILLIGRAM, ONCE A DAY
     Route: 064
     Dates: start: 202003, end: 202012
  2. LEVOTHYROXINE SODIUM [Concomitant]
     Active Substance: LEVOTHYROXINE SODIUM
     Indication: Autoimmune thyroiditis
     Dosage: 125 MICROGRAM, ONCE A DAY
     Route: 064
     Dates: start: 202003, end: 202012
  3. INFLUENZA VIRUS VACCINE [Concomitant]
     Active Substance: INFLUENZA VIRUS VACCINE
     Indication: Influenza immunisation
     Dosage: BETWEEN GW 26 TO 30
     Route: 064

REACTIONS (5)
  - Aggression [Not Recovered/Not Resolved]
  - Speech disorder developmental [Not Recovered/Not Resolved]
  - Foetal heart rate deceleration abnormality [Unknown]
  - Emotional disorder of childhood [Unknown]
  - Foetal exposure during pregnancy [Unknown]
